FAERS Safety Report 19717211 (Version 1)
Quarter: 2021Q3

REPORT INFORMATION
  Report Type: Report from Study
  Country: JP (occurrence: JP)
  Receive Date: 20210818
  Receipt Date: 20210818
  Transmission Date: 20211014
  Serious: Yes (Hospitalization)
  Sender: FDA-Public Use
  Company Number: JP-ASTRAZENECA-2021A659411

PATIENT
  Age: 26280 Day
  Sex: Male
  Weight: 54.8 kg

DRUGS (17)
  1. CARBOPLATIN. [Suspect]
     Active Substance: CARBOPLATIN
     Indication: NON-SMALL CELL LUNG CANCER
     Dosage: 188 MG/BODY
     Route: 065
     Dates: start: 20210519
  2. STUDY PROCEDURE [Suspect]
     Active Substance: INVESTIGATIONAL PRODUCT
     Indication: NON-SMALL CELL LUNG CANCER
     Dosage: PROTOCOL?DEFINED SURGERY WAS PERFORMED (OPERATIVE PROCEDURES: THORACOTOMY WITH MIDDLE AND LOWER L...
     Route: 065
     Dates: start: 20210706, end: 20210706
  3. DURVALUMAB. [Suspect]
     Active Substance: DURVALUMAB
     Indication: NON-SMALL CELL LUNG CANCER
     Dosage: 1500 MG/BODY
     Route: 042
     Dates: start: 20210609
  4. CARBOPLATIN. [Suspect]
     Active Substance: CARBOPLATIN
     Indication: NON-SMALL CELL LUNG CANCER
     Dosage: 188 MG/BODY
     Route: 065
     Dates: start: 20210609
  5. LANSOPRAZOLE. [Concomitant]
     Active Substance: LANSOPRAZOLE
     Indication: GASTRIC MUCOSA ERYTHEMA
     Dosage: 1 TABLET/DOSE ONCE A DAY
     Route: 048
     Dates: start: 20210707
  6. QUETIAPINE. [Concomitant]
     Active Substance: QUETIAPINE
     Indication: INSOMNIA
     Dosage: 1 TABLET/DOSE AS NEEDED
     Route: 048
     Dates: start: 20210707
  7. SENNOSIDE [Concomitant]
     Active Substance: SENNOSIDES
     Indication: CONSTIPATION
     Dosage: 1 TABLET/DOSE AS NEEDED
     Route: 048
     Dates: start: 20210714
  8. CARBOPLATIN. [Suspect]
     Active Substance: CARBOPLATIN
     Indication: NON-SMALL CELL LUNG CANCER
     Dosage: 188 MG/BODY
     Route: 065
     Dates: start: 20210602
  9. PACLITAXEL. [Suspect]
     Active Substance: PACLITAXEL
     Indication: NON-SMALL CELL LUNG CANCER
     Dosage: 66 MG/BODY
     Route: 065
     Dates: start: 20210519
  10. PACLITAXEL. [Suspect]
     Active Substance: PACLITAXEL
     Indication: NON-SMALL CELL LUNG CANCER
     Dosage: 66 MG/BODY
     Route: 065
     Dates: start: 20210602
  11. PIRENOXINE [Concomitant]
     Active Substance: PIRENOXINE
     Indication: CATARACT
     Dosage: 1 DROP/DOSE IN EACH EYE THREE TIMES A DAY
     Route: 047
  12. PACLITAXEL. [Suspect]
     Active Substance: PACLITAXEL
     Indication: NON-SMALL CELL LUNG CANCER
     Dosage: 49 MG/BODY
     Route: 065
     Dates: start: 20210609
  13. LOXOPROFEN SODIUM [Concomitant]
     Active Substance: LOXOPROFEN SODIUM
     Indication: PROCEDURAL PAIN
     Dosage: 1 TABLET/DOSE THREE TIMES A DAY
     Route: 048
     Dates: start: 20210707
  14. CARBOPLATIN. [Suspect]
     Active Substance: CARBOPLATIN
     Indication: NON-SMALL CELL LUNG CANCER
     Dosage: 188 MG/BODY
     Route: 065
     Dates: start: 20210512
  15. PACLITAXEL. [Suspect]
     Active Substance: PACLITAXEL
     Indication: NON-SMALL CELL LUNG CANCER
     Dosage: 66 MG/BODY
     Route: 065
     Dates: start: 20210512
  16. DURVALUMAB. [Suspect]
     Active Substance: DURVALUMAB
     Indication: NON-SMALL CELL LUNG CANCER
     Dosage: 1500 MG/BODY
     Route: 042
     Dates: start: 20210512
  17. AMBROXOL HYDROCHLORIDE [Concomitant]
     Active Substance: AMBROXOL HYDROCHLORIDE
     Indication: EMPHYSEMA
     Dosage: 1 TABLET/DOSE THREE TIMES A DAY
     Route: 048
     Dates: start: 20210707

REACTIONS (1)
  - Pulmonary fistula [Recovering/Resolving]

NARRATIVE: CASE EVENT DATE: 20210711
